FAERS Safety Report 5244951-7 (Version None)
Quarter: 2007Q1

REPORT INFORMATION
  Report Type: 
  Country: None (occurrence: None)
  Receive Date: 20070223
  Receipt Date: 20070215
  Transmission Date: 20070707
  Serious: Yes (Hospitalization)
  Sender: FDA-Public Use
  Company Number: HU-JNJFOC-20070204102

PATIENT
  Age: 6 Decade
  Sex: Female

DRUGS (3)
  1. REMICADE [Suspect]
     Dosage: 5TH INFUSION
     Route: 042
  2. REMICADE [Suspect]
     Dosage: 4TH INFUSION
     Route: 042
  3. REMICADE [Suspect]
     Indication: RHEUMATOID ARTHRITIS
     Dosage: 3 INFUSIONS
     Route: 042

REACTIONS (3)
  - GENERALISED ERYTHEMA [None]
  - NAUSEA [None]
  - URTICARIA [None]
